FAERS Safety Report 8393505-2 (Version None)
Quarter: 2012Q2

REPORT INFORMATION
  Report Type: 
  Country: None (occurrence: None)
  Receive Date: 20120529
  Receipt Date: 20120521
  Transmission Date: 20120825
  Serious: Yes (Other)
  Sender: FDA-Public Use
  Company Number: FR-FRI-1000030819

PATIENT
  Sex: Male
  Weight: 75 kg

DRUGS (4)
  1. ESCITALOPRAM [Suspect]
     Indication: DEPRESSION
     Dosage: 10 MG
     Route: 048
     Dates: start: 20111201, end: 20111210
  2. METFORMIN HCL [Concomitant]
     Dosage: 1700 MG
     Route: 048
     Dates: start: 20070101
  3. FENOFIBRATE [Concomitant]
     Dosage: 200 GBQ
     Route: 048
     Dates: start: 20060101
  4. OLMESARTAN MEDOXOMIL [Concomitant]
     Dosage: 10 MG
     Route: 048
     Dates: start: 20060101

REACTIONS (2)
  - MIDDLE INSOMNIA [None]
  - NIGHT SWEATS [None]
